FAERS Safety Report 8356883-6 (Version None)
Quarter: 2012Q2

REPORT INFORMATION
  Report Type: 
  Country: None (occurrence: None)
  Receive Date: 20120514
  Receipt Date: 20120508
  Transmission Date: 20120825
  Serious: Yes (Other)
  Sender: FDA-Public Use
  Company Number: US-PFIZER INC-2012114429

PATIENT
  Sex: Female

DRUGS (1)
  1. CHANTIX [Suspect]
     Dosage: UNK
     Dates: start: 20081028

REACTIONS (8)
  - CONVULSION [None]
  - AGGRESSION [None]
  - NIGHTMARE [None]
  - IMPAIRED DRIVING ABILITY [None]
  - SYNCOPE [None]
  - HALLUCINATION [None]
  - AMNESIA [None]
  - DEPRESSION [None]
